FAERS Safety Report 11269619 (Version 3)
Quarter: 2015Q4

REPORT INFORMATION
  Report Type: Report from Study
  Country: RU (occurrence: RU)
  Receive Date: 20150714
  Receipt Date: 20151130
  Transmission Date: 20160304
  Serious: Yes (Death, Life-Threatening, Hospitalization)
  Sender: FDA-Public Use
  Company Number: RU-BAYER-2015-377374

PATIENT
  Age: 55 Year
  Sex: Male

DRUGS (6)
  1. RADIUM-223 DICHLORIDE [Suspect]
     Active Substance: RADIUM RA-223 DICHLORIDE
     Indication: PROSTATE CANCER STAGE IV
     Dosage: 50 KBQ EVERY 4 WEEKS
     Route: 042
     Dates: start: 20150429, end: 20150702
  2. ZOLEDRONIC ACID [Concomitant]
     Active Substance: ZOLEDRONIC ACID
     Indication: PROSTATE CANCER
     Dosage: 4 MG, Q4WK
     Route: 042
     Dates: start: 20120327
  3. ZOLADEX [Concomitant]
     Active Substance: GOSERELIN ACETATE
     Indication: PROSTATE CANCER
     Dosage: 36 MG, Q4WK
     Route: 058
     Dates: start: 20120301
  4. RADIUM-223 DICHLORIDE [Suspect]
     Active Substance: RADIUM RA-223 DICHLORIDE
     Indication: METASTASES TO BONE
  5. TRAMADOL. [Concomitant]
     Active Substance: TRAMADOL
     Indication: PAIN
     Dosage: 100 MG TWICE A DAY
     Dates: start: 20141210
  6. KETAZOLAM [Concomitant]
     Active Substance: KETAZOLAM
     Indication: PAIN
     Dosage: 30 MG DAILY
     Route: 048
     Dates: start: 20141210

REACTIONS (4)
  - Sepsis [None]
  - Fatigue [None]
  - Hypotension [None]
  - Neutropenia [Fatal]

NARRATIVE: CASE EVENT DATE: 20150707
